FAERS Safety Report 13758819 (Version 1)
Quarter: 2017Q3

REPORT INFORMATION
  Report Type: Spontaneous
  Country: US (occurrence: US)
  Receive Date: 20170717
  Receipt Date: 20170717
  Transmission Date: 20171127
  Serious: Yes (Other)
  Sender: FDA-Public Use
  Company Number: None

PATIENT
  Age: 52 Year
  Sex: Male
  Weight: 60.75 kg

DRUGS (5)
  1. MULTIVITAMIN [Concomitant]
     Active Substance: VITAMINS
  2. TUMERIC W/BLACK PEPPER [Concomitant]
  3. GLUCOSAMINE CHONDROITIN [Concomitant]
     Active Substance: CHONDROITIN SULFATE (BOVINE)\GLUCOSAMINE HYDROCHLORIDE
  4. VITAMIN D3 [Concomitant]
     Active Substance: CHOLECALCIFEROL
  5. SALINE NASAL SPRAY (MEDIBEST) [Suspect]
     Active Substance: SODIUM CHLORIDE
     Indication: SINUS DISORDER
     Dosage: OTHER ROUTE:SPRAY INTO NOSE?

REACTIONS (2)
  - Product substitution issue [None]
  - Nasal discomfort [None]

NARRATIVE: CASE EVENT DATE: 20170701
